FAERS Safety Report 19746017 (Version 1)
Quarter: 2021Q3

REPORT INFORMATION
  Report Type: Report from Study
  Country: US (occurrence: US)
  Receive Date: 20210825
  Receipt Date: 20210825
  Transmission Date: 20211014
  Serious: Yes (Other)
  Sender: FDA-Public Use
  Company Number: US-SA-2021SA036006

PATIENT
  Age: 74 Year
  Sex: Female

DRUGS (1)
  1. IMIGLUCERASE [Suspect]
     Active Substance: IMIGLUCERASE
     Indication: GAUCHER^S DISEASE
     Dosage: 4000 IU, QOW
     Route: 042
     Dates: start: 19941018

REACTIONS (8)
  - Musculoskeletal disorder [Unknown]
  - Benign breast neoplasm [Unknown]
  - Cerebrovascular accident [Not Recovered/Not Resolved]
  - Myopathy [Unknown]
  - Anaemia [Unknown]
  - Movement disorder [Unknown]
  - Cerebral haemorrhage [Unknown]
  - Balance disorder [Not Recovered/Not Resolved]

NARRATIVE: CASE EVENT DATE: 2016
